FAERS Safety Report 15164748 (Version 4)
Quarter: 2018Q4

REPORT INFORMATION
  Report Type: Spontaneous
  Country: US (occurrence: US)
  Receive Date: 20180719
  Receipt Date: 20181119
  Transmission Date: 20190204
  Serious: Yes (Hospitalization)
  Sender: FDA-Public Use
  Company Number: US-SA-2018SA193150

PATIENT
  Age: 78 Year
  Sex: Male

DRUGS (1)
  1. DUPILUMAB [Suspect]
     Active Substance: DUPILUMAB
     Indication: DERMATITIS ATOPIC
     Dosage: 300 MG, QOW
     Route: 058
     Dates: start: 201706

REACTIONS (8)
  - Dermatitis [Unknown]
  - Aortic aneurysm [Unknown]
  - Eye irritation [Unknown]
  - Urinary tract infection [Unknown]
  - Ocular hyperaemia [Unknown]
  - Injection site reaction [Unknown]
  - Hyperkeratosis [Unknown]
  - Blepharitis [Unknown]
